FAERS Safety Report 5964139-1 (Version None)
Quarter: 2008Q4

REPORT INFORMATION
  Report Type: 
  Country: None (occurrence: None)
  Receive Date: 20081121
  Receipt Date: 20081121
  Transmission Date: 20090506
  Serious: No
  Sender: FDA-Public Use
  Company Number: None

PATIENT
  Age: 53 Year
  Sex: Female
  Weight: 86.1834 kg

DRUGS (1)
  1. ASMANEX TWISTHALER [Suspect]
     Indication: ASTHMA
     Dosage: 1 TWIST 1 A DAY

REACTIONS (6)
  - BURNING SENSATION [None]
  - EXOSTOSIS [None]
  - JOINT LOCK [None]
  - MUSCLE TIGHTNESS [None]
  - PAIN [None]
  - TENDERNESS [None]
